FAERS Safety Report 4415535-5 (Version None)
Quarter: 2004Q3

REPORT INFORMATION
  Report Type: 
  Country: None (occurrence: None)
  Receive Date: 20040804
  Receipt Date: 20040727
  Transmission Date: 20050211
  Serious: Yes (Death, Hospitalization)
  Sender: FDA-Public Use
  Company Number: US-MERCK-0407USA02421

PATIENT
  Age: 44 Year
  Sex: Female

DRUGS (6)
  1. CYCLOPHOSPHAMIDE [Concomitant]
     Indication: ACUTE LYMPHOCYTIC LEUKAEMIA
     Route: 065
  2. DECADRON [Suspect]
     Indication: ACUTE LYMPHOCYTIC LEUKAEMIA
     Route: 048
  3. DOXORUBICIN [Concomitant]
     Indication: ACUTE LYMPHOCYTIC LEUKAEMIA
     Route: 065
  4. ETOPOSIDE [Concomitant]
     Indication: ACUTE LYMPHOCYTIC LEUKAEMIA
     Route: 065
  5. METHOTREXATE [Concomitant]
     Route: 051
  6. VINCRISTINE SULFATE [Concomitant]
     Indication: ACUTE LYMPHOCYTIC LEUKAEMIA
     Route: 065

REACTIONS (16)
  - ACUTE LYMPHOCYTIC LEUKAEMIA [None]
  - BACTERIURIA [None]
  - BAND NEUTROPHIL PERCENTAGE INCREASED [None]
  - BLOOD ALKALINE PHOSPHATASE INCREASED [None]
  - BLOOD LACTATE DEHYDROGENASE INCREASED [None]
  - CSF CULTURE POSITIVE [None]
  - DEPRESSED LEVEL OF CONSCIOUSNESS [None]
  - GLUCOSE URINE PRESENT [None]
  - LETHARGY [None]
  - LISTERIOSIS [None]
  - LYMPHOCYTE PERCENTAGE DECREASED [None]
  - MYELOCYTE COUNT INCREASED [None]
  - NUCHAL RIGIDITY [None]
  - PHARYNGEAL ULCERATION [None]
  - PUPILLARY REFLEX IMPAIRED [None]
  - PYREXIA [None]
